FAERS Safety Report 8780359 (Version 1)
Quarter: 2012Q4

REPORT INFORMATION
  Report Type: Spontaneous
  Country: US (occurrence: None)
  Receive Date: 20120905
  Receipt Date: 20120905
  Transmission Date: 20130627
  Serious: Yes (Other)
  Sender: FDA-Public Use
  Company Number: None

PATIENT
  Age: 58 Year
  Sex: Male
  Weight: 58.97 kg

DRUGS (1)
  1. FORTEO [Suspect]
     Dosage: daily shot in stomach
     Dates: start: 20120620, end: 20120719

REACTIONS (8)
  - Influenza like illness [None]
  - Myalgia [None]
  - Asthenia [None]
  - Pain [None]
  - Balance disorder [None]
  - Confusional state [None]
  - Dementia [None]
  - Gait disturbance [None]
